FAERS Safety Report 9701267 (Version 2)
Quarter: 2013Q4

REPORT INFORMATION
  Report Type: Spontaneous
  Country: US (occurrence: US)
  Receive Date: 20131121
  Receipt Date: 20131121
  Transmission Date: 20140711
  Serious: No
  Sender: FDA-Public Use
  Company Number: US-GILEAD-2008-0015907

PATIENT
  Age: 55 Year
  Sex: Male
  Weight: 121.56 kg

DRUGS (14)
  1. LETAIRIS [Suspect]
     Indication: PULMONARY ARTERIAL HYPERTENSION
     Route: 048
     Dates: start: 20080225, end: 20080328
  2. COREG CR [Concomitant]
  3. ZAROXOLYN [Concomitant]
  4. LIPITOR [Concomitant]
  5. LASIX [Concomitant]
  6. ASPIRIN [Concomitant]
  7. LYRICA [Concomitant]
  8. VICODIN 5/500 [Concomitant]
  9. DARVOCET N-100 [Concomitant]
  10. HUMULIN R [Concomitant]
  11. LANTUS [Concomitant]
  12. TYLENOL EX-ST [Concomitant]
  13. CLINDAMYCIN [Concomitant]
  14. POTASSIUM CHLORIDE [Concomitant]

REACTIONS (7)
  - Diabetes mellitus inadequate control [Unknown]
  - Fatigue [Unknown]
  - Dyspnoea [Unknown]
  - Secretion discharge [Unknown]
  - Retching [Unknown]
  - Oedema [Unknown]
  - Constipation [Unknown]
